FAERS Safety Report 22645299 (Version 1)
Quarter: 2023Q2

REPORT INFORMATION
  Report Type: Spontaneous
  Country: US (occurrence: None)
  Receive Date: 20230626
  Receipt Date: 20230626
  Transmission Date: 20230722
  Serious: Yes (Disabling, Other)
  Sender: FDA-Public Use
  Company Number: None

PATIENT
  Age: 71 Year
  Sex: Female
  Weight: 61.2 kg

DRUGS (7)
  1. FLUCONAZOLE [Suspect]
     Active Substance: FLUCONAZOLE
     Indication: Vaginal infection
     Dosage: 1 TABLET ONE TIME DOSE ORAL?
     Route: 048
     Dates: start: 20230603, end: 20230603
  2. SIMVASTATIN [Concomitant]
     Active Substance: SIMVASTATIN
  3. NP THYROID [Concomitant]
     Active Substance: LEVOTHYROXINE\LIOTHYRONINE
  4. VITAMINS [Concomitant]
     Active Substance: VITAMINS
  5. GINKGO [Concomitant]
     Active Substance: GINKGO
  6. VITAMIN C [Concomitant]
     Active Substance: ASCORBIC ACID
  7. CRANBERRY [Concomitant]
     Active Substance: CRANBERRY

REACTIONS (9)
  - Tremor [None]
  - Chest pain [None]
  - Extrasystoles [None]
  - Anxiety [None]
  - Insomnia [None]
  - Dry mouth [None]
  - Dizziness [None]
  - Dizziness [None]
  - Abdominal pain upper [None]

NARRATIVE: CASE EVENT DATE: 20230603
